FAERS Safety Report 10152837 (Version 1)
Quarter: 2014Q2

REPORT INFORMATION
  Report Type: Spontaneous
  Country: US (occurrence: None)
  Receive Date: 20140502
  Receipt Date: 20140502
  Transmission Date: 20141212
  Serious: No
  Sender: FDA-Public Use
  Company Number: None

PATIENT
  Age: 40 Year
  Sex: Female
  Weight: 91.63 kg

DRUGS (2)
  1. BUPROPION XL [Suspect]
     Indication: ANXIETY
     Route: 048
     Dates: start: 20140401, end: 20140501
  2. BUPROPION XL [Suspect]
     Indication: DEPRESSION
     Route: 048
     Dates: start: 20140401, end: 20140501

REACTIONS (5)
  - Anxiety [None]
  - Depression [None]
  - Insomnia [None]
  - Product quality issue [None]
  - Drug effect decreased [None]
